FAERS Safety Report 15694196 (Version 1)
Quarter: 2018Q4

REPORT INFORMATION
  Report Type: Spontaneous
  Country: US (occurrence: US)
  Receive Date: 20181206
  Receipt Date: 20181206
  Transmission Date: 20190205
  Serious: Yes (Hospitalization)
  Sender: FDA-Public Use
  Company Number: US-ANTARES PHARMA, INC.-2018-SPO-ME-0526

PATIENT
  Weight: 108.4 kg

DRUGS (29)
  1. METHOTREXATE. [Suspect]
     Active Substance: METHOTREXATE
     Dosage: 15 MG, UNK
     Route: 037
     Dates: start: 20171226, end: 20171226
  2. METHOTREXATE. [Suspect]
     Active Substance: METHOTREXATE
     Dosage: 15 UNK, UNK
     Route: 037
  3. RUXOLITINIB [Suspect]
     Active Substance: RUXOLITINIB
     Indication: ACUTE LYMPHOCYTIC LEUKAEMIA
     Dosage: 80 MG, BID
     Route: 048
     Dates: start: 20171219, end: 20180110
  4. MERCAPTOPURINE. [Suspect]
     Active Substance: MERCAPTOPURINE
     Dosage: 25 MG/M2, UNK
     Route: 048
     Dates: start: 20180320
  5. VINCRISTINE [Suspect]
     Active Substance: VINCRISTINE
     Dosage: 2 MG, UNK
     Route: 042
     Dates: start: 20180109, end: 20180109
  6. LEUCOVORIN                         /00566701/ [Suspect]
     Active Substance: LEUCOVORIN
     Dosage: 34 MG, UNK
     Route: 042
     Dates: start: 20180322, end: 20180403
  7. MERCAPTOPURINE. [Suspect]
     Active Substance: MERCAPTOPURINE
     Dosage: 60 MG/M2, UNK
     Route: 048
  8. CYTARABINE. [Suspect]
     Active Substance: CYTARABINE
     Indication: ACUTE LYMPHOCYTIC LEUKAEMIA
     Dosage: 75 MG/KG, UNK
     Route: 042
     Dates: start: 20171219, end: 20171222
  9. PEGASPARGASE [Suspect]
     Active Substance: PEGASPARGASE
     Indication: ACUTE LYMPHOCYTIC LEUKAEMIA
     Dosage: 1500 UNK, UNK
     Route: 042
     Dates: start: 20180103, end: 20180103
  10. METHOTREXATE. [Suspect]
     Active Substance: METHOTREXATE
     Dosage: 15 MG, UNK
     Route: 037
     Dates: start: 20180109, end: 20180109
  11. RUXOLITINIB [Suspect]
     Active Substance: RUXOLITINIB
     Dosage: 80 MG, BID
     Route: 048
     Dates: start: 20180113, end: 20180222
  12. CYCLOPHOSPHAMIDE. [Suspect]
     Active Substance: CYCLOPHOSPHAMIDE
     Indication: ACUTE LYMPHOCYTIC LEUKAEMIA
     Dosage: 2310 MG, UNK
     Route: 042
     Dates: start: 20171219
  13. MERCAPTOPURINE. [Suspect]
     Active Substance: MERCAPTOPURINE
     Indication: ACUTE LYMPHOCYTIC LEUKAEMIA
     Dosage: 5000 MG/M2, UNK
     Route: 042
     Dates: start: 20171219
  14. VINCRISTINE [Suspect]
     Active Substance: VINCRISTINE
     Dosage: 2 MG, UNK
     Route: 042
     Dates: start: 20180103
  15. RIVAROXABAN [Concomitant]
     Active Substance: RIVAROXABAN
  16. RUXOLITINIB [Suspect]
     Active Substance: RUXOLITINIB
     Dosage: 80 MG, BID
     Route: 048
     Dates: start: 20180223
  17. MERCAPTOPURINE. [Suspect]
     Active Substance: MERCAPTOPURINE
     Dosage: 60 MG/M2, UNK
     Route: 048
     Dates: start: 20171219, end: 20171229
  18. CYTARABINE. [Suspect]
     Active Substance: CYTARABINE
     Dosage: 75 MG/M2, UNK
     Route: 042
     Dates: start: 20171226, end: 20171229
  19. VINCRISTINE [Suspect]
     Active Substance: VINCRISTINE
     Indication: ACUTE LYMPHOCYTIC LEUKAEMIA
     Dosage: 2 MG, UNK
     Route: 042
     Dates: start: 20180103, end: 20180103
  20. CHOLECALCIFEROL [Concomitant]
     Active Substance: CHOLECALCIFEROL
     Dosage: UNK
  21. METHOTREXATE. [Suspect]
     Active Substance: METHOTREXATE
     Dosage: 15 MG, UNK
     Route: 037
     Dates: start: 20180103, end: 20180103
  22. RUXOLITINIB [Suspect]
     Active Substance: RUXOLITINIB
     Dosage: 40 MG/M2, BID
     Route: 048
     Dates: start: 20180320
  23. MERCAPTOPURINE. [Suspect]
     Active Substance: MERCAPTOPURINE
     Dosage: 15 MG, UNK
     Route: 037
     Dates: start: 20171226, end: 20171226
  24. CYTARABINE. [Suspect]
     Active Substance: CYTARABINE
     Dosage: 75 UNK, UNK
     Route: 042
  25. VINCRISTINE [Suspect]
     Active Substance: VINCRISTINE
     Dosage: 1.5 MG/M2, UNK
     Dates: start: 20180320, end: 20180320
  26. PEGASPARGASE [Suspect]
     Active Substance: PEGASPARGASE
     Dosage: 2500 UNK, UNK
     Route: 042
  27. METHOTREXATE. [Suspect]
     Active Substance: METHOTREXATE
     Indication: ACUTE LYMPHOCYTIC LEUKAEMIA
     Dosage: 15 MG,
     Route: 037
     Dates: start: 20171219, end: 20171219
  28. MERCAPTOPURINE. [Suspect]
     Active Substance: MERCAPTOPURINE
     Dosage: 15 UNK, UNK
     Route: 042
     Dates: start: 20180320, end: 20180320
  29. LEUCOVORIN                         /00566701/ [Suspect]
     Active Substance: LEUCOVORIN
     Indication: ACUTE LYMPHOCYTIC LEUKAEMIA
     Dosage: 15 MG/M2, UNK

REACTIONS (4)
  - Chemotherapeutic drug level increased [Recovered/Resolved]
  - Febrile neutropenia [Recovered/Resolved]
  - Escherichia infection [Recovered/Resolved]
  - Febrile neutropenia [Recovered/Resolved]

NARRATIVE: CASE EVENT DATE: 20180113
